FAERS Safety Report 12685744 (Version 2)
Quarter: 2016Q3

REPORT INFORMATION
  Report Type: Spontaneous
  Country: CH (occurrence: CH)
  Receive Date: 20160825
  Receipt Date: 20160829
  Transmission Date: 20161109
  Serious: Yes (Death, Other)
  Sender: FDA-Public Use
  Company Number: CH-ELI_LILLY_AND_COMPANY-CH201608012002

PATIENT
  Age: 70 Year

DRUGS (2)
  1. ERBITUX [Suspect]
     Active Substance: CETUXIMAB
     Indication: SALIVARY GLAND CANCER
     Dosage: 700 MG, SINGLE
     Route: 042
     Dates: start: 20160718
  2. ERBITUX [Suspect]
     Active Substance: CETUXIMAB
     Dosage: 500 MG, WEEKLY (1/W)
     Route: 042

REACTIONS (5)
  - Off label use [Unknown]
  - Sepsis [Fatal]
  - Pneumonia aspiration [Fatal]
  - Jaw fracture [Unknown]
  - Respiratory failure [Fatal]

NARRATIVE: CASE EVENT DATE: 20160718
